FAERS Safety Report 9372932 (Version 1)
Quarter: 2013Q2

REPORT INFORMATION
  Report Type: Spontaneous
  Country: JP (occurrence: JP)
  Receive Date: 20130627
  Receipt Date: 20130627
  Transmission Date: 20140414
  Serious: Yes (Death)
  Sender: FDA-Public Use
  Company Number: JP-NAPPMUNDI-GBR-2013-0014717

PATIENT
  Sex: Male

DRUGS (2)
  1. OXYCODONE HYDROCHLORIDE [Suspect]
     Indication: CANCER PAIN
     Dosage: 576 MG, DAILY
     Route: 058
     Dates: start: 20130510, end: 20130614
  2. LYRICA [Suspect]
     Indication: NEURALGIA
     Dosage: 300 MG, DAILY
     Route: 048
     Dates: start: 20130520, end: 20130610

REACTIONS (2)
  - Somnolence [Not Recovered/Not Resolved]
  - Malignant neoplasm progression [Fatal]
